FAERS Safety Report 6433456-3 (Version None)
Quarter: 2009Q4

REPORT INFORMATION
  Report Type: 
  Country: None (occurrence: None)
  Receive Date: 20091106
  Receipt Date: 20091106
  Transmission Date: 20100525
  Serious: No
  Sender: FDA-Public Use
  Company Number: None

PATIENT
  Sex: Female

DRUGS (1)
  1. CHLORDIAZEPOXIDE HCL W/ CLIDINIUM BROMIDE [Suspect]
     Dosage: 5 MG/2.5 MG, ORAL (047)
     Route: 048

REACTIONS (3)
  - ABDOMINAL PAIN UPPER [None]
  - PRODUCT ODOUR ABNORMAL [None]
  - PRODUCT TASTE ABNORMAL [None]
